FAERS Safety Report 8429844 (Version 3)
Quarter: 2013Q1

REPORT INFORMATION
  Report Type: Report from Study
  Country: US (occurrence: US)
  Receive Date: 20120228
  Receipt Date: 20130221
  Transmission Date: 20140127
  Serious: Yes (Hospitalization, Other)
  Sender: FDA-Public Use
  Company Number: US-JNJFOC-20120102457

PATIENT
  Sex: Male

DRUGS (18)
  1. ABIRATERONE ACETATE [Suspect]
     Route: 048
  2. ABIRATERONE ACETATE [Suspect]
     Indication: PROSTATE CANCER
     Route: 048
     Dates: start: 20110830, end: 20120113
  3. DASATINIB [Suspect]
     Indication: PROSTATE CANCER
     Route: 048
     Dates: start: 20111025, end: 20121220
  4. SUNITINIB [Suspect]
     Indication: PROSTATE CANCER
     Route: 065
  5. PREDNISONE [Concomitant]
     Indication: PROSTATE CANCER
     Route: 048
     Dates: start: 20110830, end: 20111220
  6. ALLOPURINOL [Concomitant]
     Indication: GOUT
     Route: 048
  7. ADVIL [Concomitant]
     Indication: GOUT
     Route: 048
     Dates: start: 20110825
  8. B12 [Concomitant]
     Indication: MEDICAL DIET
     Route: 060
     Dates: start: 20110311
  9. CALCIUM [Concomitant]
     Indication: MEDICAL DIET
     Route: 048
     Dates: start: 20110311
  10. CARAFATE [Concomitant]
     Indication: DYSPEPSIA
     Route: 048
     Dates: start: 20111022
  11. HYDROCODONE [Concomitant]
     Indication: PAIN
     Dosage: 7.5/500 MG
     Route: 048
     Dates: start: 20111024
  12. FLEXERIL [Concomitant]
     Indication: PAIN
     Route: 065
     Dates: start: 20111025
  13. IRON [Concomitant]
     Indication: MEDICAL DIET
     Route: 048
     Dates: start: 20110311
  14. LYRICA [Concomitant]
     Indication: PAIN
     Route: 065
     Dates: start: 20111025
  15. LUPRON [Concomitant]
     Indication: PROSTATE CANCER
     Route: 030
     Dates: start: 20100820
  16. METAFIBER [Concomitant]
     Indication: CONSTIPATION
     Route: 048
     Dates: start: 20110820
  17. MULTIVITAMINS [Concomitant]
     Indication: MEDICAL DIET
     Route: 048
     Dates: start: 20110311
  18. VITAMIN D [Concomitant]
     Indication: MEDICAL DIET
     Route: 048
     Dates: start: 20110311

REACTIONS (1)
  - Pneumonitis [Recovering/Resolving]
